FAERS Safety Report 25525650 (Version 1)
Quarter: 2025Q3

REPORT INFORMATION
  Report Type: Spontaneous
  Country: GB (occurrence: GB)
  Receive Date: 20250707
  Receipt Date: 20250707
  Transmission Date: 20251020
  Serious: Yes (Other)
  Sender: ELI LILLY AND COMPANY
  Company Number: GB-ELI_LILLY_AND_COMPANY-GB202507002516

PATIENT
  Sex: Female

DRUGS (4)
  1. MOUNJARO [Interacting]
     Active Substance: TIRZEPATIDE
     Indication: Product used for unknown indication
     Route: 065
  2. ESTRADIOL [Interacting]
     Active Substance: ESTRADIOL
     Indication: Menopause
     Route: 065
  3. ESTRADIOL [Interacting]
     Active Substance: ESTRADIOL
     Indication: Hormone replacement therapy
  4. MIRENA [Interacting]
     Active Substance: LEVONORGESTREL
     Indication: Hormone replacement therapy
     Route: 065

REACTIONS (4)
  - Brain fog [Recovered/Resolved]
  - Menstrual disorder [Recovered/Resolved]
  - Menopausal symptoms [Recovered/Resolved]
  - Drug interaction [Recovered/Resolved]

NARRATIVE: CASE EVENT DATE: 20250302
